FAERS Safety Report 19923060 (Version 20)
Quarter: 2023Q2

REPORT INFORMATION
  Report Type: Report from Study
  Country: KR (occurrence: None)
  Receive Date: 20211005
  Receipt Date: 20230601
  Transmission Date: 20230721
  Serious: Yes (Hospitalization)
  Sender: FDA-Public Use
  Company Number: KR-ROCHE-2925145

PATIENT
  Age: 74 Year
  Sex: Female
  Weight: 48 kg

DRUGS (71)
  1. ATEZOLIZUMAB [Suspect]
     Active Substance: ATEZOLIZUMAB
     Indication: Bile duct cancer
     Dosage: START DATE OF MOST RECENT DOSE (1200 MG) OF ATEZOLIZUMAB PRIOR TO AE/SAE : 29/SEP/2021?START DATE OF
     Route: 042
     Dates: start: 20210707
  2. BEVACIZUMAB [Suspect]
     Active Substance: BEVACIZUMAB
     Indication: Bile duct cancer
     Dosage: START DATE OF MOST RECENT DOSE OF BLINDED BEVACIZUMAB PRIOR TO AE/SAE : 29/SEP/2021?START DATE OF MO
     Route: 042
     Dates: start: 20210707
  3. CISPLATIN [Suspect]
     Active Substance: CISPLATIN
     Indication: Bile duct cancer
     Dosage: START DATE OF MOST RECENT DOSE (35 MG) OF CISPLATIN PRIOR TO AE/SAE : 15/SEP/2021?START DATE OF MOST
     Route: 042
     Dates: start: 20210707
  4. GEMCITABINE [Suspect]
     Active Substance: GEMCITABINE
     Indication: Bile duct cancer
     Dosage: START DATE OF MOST RECENT DOSE (1400 MG) OF STUDY DRUG PRIOR TO AE/SAE : 15/SEP/2021?START DATE OF M
     Route: 042
     Dates: start: 20210707
  5. LIPITOR [Concomitant]
     Active Substance: ATORVASTATIN CALCIUM
     Indication: Hyperlipidaemia
     Dosage: LIPITOR 20MG
     Dates: start: 2016
  6. METOCLOPRAMIDE HYDROCHLORIDE [Concomitant]
     Active Substance: METOCLOPRAMIDE HYDROCHLORIDE
     Indication: Prophylaxis of nausea and vomiting
     Dosage: MACPERAN 5MG
     Dates: start: 20210708
  7. METOCLOPRAMIDE HYDROCHLORIDE [Concomitant]
     Active Substance: METOCLOPRAMIDE HYDROCHLORIDE
     Dosage: 10MG/2ML
     Dates: start: 20220714, end: 20220715
  8. METOCLOPRAMIDE HYDROCHLORIDE [Concomitant]
     Active Substance: METOCLOPRAMIDE HYDROCHLORIDE
     Dates: start: 20220725, end: 20220725
  9. METOCLOPRAMIDE HYDROCHLORIDE [Concomitant]
     Active Substance: METOCLOPRAMIDE HYDROCHLORIDE
     Dates: start: 20221018
  10. RAMOSETRON HYDROCHLORIDE [Concomitant]
     Active Substance: RAMOSETRON HYDROCHLORIDE
     Indication: Prophylaxis
     Dosage: NASEA OD 0.1MG
     Dates: start: 20210708
  11. OXYCODONE HYDROCHLORIDE [Concomitant]
     Active Substance: OXYCODONE HYDROCHLORIDE
     Indication: Prophylaxis
     Dosage: IRCODON 5MG
     Dates: start: 20210708
  12. MOSAPRIDE CITRATE [Concomitant]
     Active Substance: MOSAPRIDE CITRATE
     Indication: Prophylaxis
     Dosage: GASMOTIN 5MG
     Dates: start: 20210708
  13. MAGMIL S [Concomitant]
     Indication: Prophylaxis
     Dosage: PROPHYLAXIS FOR CONSTIPATION
     Dates: start: 20210708, end: 20220608
  14. LACTULOSE [Concomitant]
     Active Substance: LACTULOSE
     Indication: Prophylaxis
     Dosage: DUPHALAC-EASY SYR. 15ML
     Dates: start: 20210708
  15. TANTUM [Concomitant]
     Active Substance: BENZYDAMINE HYDROCHLORIDE
     Indication: Prophylaxis
     Dosage: TANTUM 1.5MG/ML 100ML
     Dates: start: 20210708
  16. MEGACE F [Concomitant]
     Indication: Prophylaxis
     Dosage: MEGACE-F 625MG/5ML
     Dates: start: 20210704, end: 20220726
  17. DEXAMETHASONE [Concomitant]
     Active Substance: DEXAMETHASONE
     Dosage: DEXAMETHASONE 5MG/1ML
     Route: 042
     Dates: start: 20210707
  18. DEXAMETHASONE [Concomitant]
     Active Substance: DEXAMETHASONE
     Dosage: DEXAMETHASONE 5MG/1ML
     Route: 042
     Dates: start: 20221014, end: 20221014
  19. AKYNZEO [Concomitant]
     Dosage: AKYNZEO 300MG+0.56MG
     Dates: start: 20210707
  20. AKYNZEO [Concomitant]
     Dates: start: 20221014, end: 20221014
  21. PROPACETAMOL HYDROCHLORIDE [Concomitant]
     Active Substance: PROPACETAMOL HYDROCHLORIDE
     Dosage: DENOGAN 1G
     Dates: start: 20210929, end: 20210929
  22. PROPACETAMOL HYDROCHLORIDE [Concomitant]
     Active Substance: PROPACETAMOL HYDROCHLORIDE
     Dates: start: 20220710, end: 20220711
  23. SUPRAX [Concomitant]
     Active Substance: CEFIXIME
     Indication: Prophylaxis
     Dosage: SUPRAX 100MG
     Dates: start: 20210929, end: 20211005
  24. PIPERACILLIN SODIUM\TAZOBACTAM SODIUM [Concomitant]
     Active Substance: PIPERACILLIN SODIUM\TAZOBACTAM SODIUM
     Dosage: 4G+0.5G
     Dates: start: 20210929, end: 20211001
  25. PREPAIN [Concomitant]
     Dates: start: 20211130
  26. K-CAB [Concomitant]
     Indication: Nausea
     Dates: start: 20220316
  27. ALMAGEL-F [Concomitant]
     Indication: Gastritis
     Dates: start: 20220427
  28. GANAKHAN [Concomitant]
     Dates: start: 20220112
  29. ELECTROLYTES NOS\MINERALS [Concomitant]
     Active Substance: ELECTROLYTES NOS\MINERALS
     Indication: Decreased appetite
     Dates: start: 20220625, end: 20220626
  30. ELECTROLYTES NOS\MINERALS [Concomitant]
     Active Substance: ELECTROLYTES NOS\MINERALS
     Dates: start: 20220719, end: 20220719
  31. BENZETACIL [Concomitant]
     Indication: Syphilis
     Dates: start: 20220713, end: 20220727
  32. BROPIUM [Concomitant]
     Dosage: 5MG/1ML
     Dates: start: 20220711, end: 20220711
  33. BROPIUM [Concomitant]
     Dosage: 5MG/1ML
     Dates: start: 20220728, end: 20220728
  34. MIDAZOLAM [Concomitant]
     Active Substance: MIDAZOLAM
     Dosage: 5MG/5ML
     Dates: start: 20220711, end: 20220711
  35. MIDAZOLAM [Concomitant]
     Active Substance: MIDAZOLAM
     Dosage: 5MG/5ML
     Dates: start: 20220728, end: 20220728
  36. MEPERIDINE [Concomitant]
     Active Substance: MEPERIDINE
     Dosage: 25MG/0.5ML
     Dates: start: 20220711, end: 20220711
  37. FENTANYL CITRATE [Concomitant]
     Active Substance: FENTANYL CITRATE
     Dosage: 50MCG/1ML
     Dates: start: 20220711, end: 20220711
  38. FERINJECT [Concomitant]
     Active Substance: FERRIC CARBOXYMALTOSE
     Dosage: 100MG/2ML
     Dates: start: 20220712, end: 20220712
  39. TRAMADOL HYDROCHLORIDE [Concomitant]
     Active Substance: TRAMADOL HYDROCHLORIDE
     Dosage: 50MG/1ML
     Dates: start: 20220711, end: 20220718
  40. LIVALO [Concomitant]
     Active Substance: PITAVASTATIN CALCIUM
     Indication: Hyperlipidaemia
     Dates: start: 20220628
  41. TRESIBA [Concomitant]
     Active Substance: INSULIN DEGLUDEC
     Route: 042
     Dates: start: 20220811
  42. URSODIOL [Concomitant]
     Active Substance: URSODIOL
     Dates: start: 20220711, end: 20220913
  43. URSODIOL [Concomitant]
     Active Substance: URSODIOL
     Dates: start: 20220715, end: 20220913
  44. CREON [Concomitant]
     Active Substance: PANCRELIPASE AMYLASE\PANCRELIPASE LIPASE\PANCRELIPASE PROTEASE
     Dates: start: 20220719, end: 20220725
  45. CREON [Concomitant]
     Active Substance: PANCRELIPASE AMYLASE\PANCRELIPASE LIPASE\PANCRELIPASE PROTEASE
     Dates: start: 20220824, end: 20220913
  46. ENOXAPARIN SODIUM [Concomitant]
     Active Substance: ENOXAPARIN SODIUM
     Dates: start: 20221005
  47. NEUSTATIN [Concomitant]
     Dates: start: 20221006
  48. NEWLANSO [Concomitant]
     Dates: start: 20221006
  49. WARFARIN [Concomitant]
     Active Substance: WARFARIN
     Dates: start: 20221007
  50. FERROUS SULFATE [Concomitant]
     Active Substance: FERROUS SULFATE
     Indication: Anaemia
     Dates: start: 20221012
  51. AKYNZEO [Concomitant]
  52. CLOPIDOGREL BISULFATE [Concomitant]
     Active Substance: CLOPIDOGREL BISULFATE
     Dates: start: 20221014, end: 20221014
  53. DULACKHAN EASY [Concomitant]
     Dates: start: 20221016
  54. DULACKHAN EASY [Concomitant]
     Dates: start: 20220730, end: 20220730
  55. PANTOPRAZOLE SODIUM [Concomitant]
     Active Substance: PANTOPRAZOLE SODIUM
     Dates: start: 20220711, end: 20220717
  56. PIPERACILLIN SODIUM\TAZOBACTAM SODIUM [Concomitant]
     Active Substance: PIPERACILLIN SODIUM\TAZOBACTAM SODIUM
     Indication: Cholangitis
     Dosage: 4G+0.5 G
     Dates: start: 20220710, end: 20220718
  57. DIMETHICONE\PANCRELIPASE\URSODIOL [Concomitant]
     Active Substance: DIMETHICONE\PANCRELIPASE\URSODIOL
     Indication: Vomiting
     Dates: start: 20220714
  58. VALTREX [Concomitant]
     Active Substance: VALACYCLOVIR HYDROCHLORIDE
     Indication: Herpes simplex reactivation
     Dates: start: 20220716, end: 20220722
  59. NEURONTIN [Concomitant]
     Active Substance: GABAPENTIN
     Dates: start: 20220716, end: 20220717
  60. ULTRACET [Concomitant]
     Active Substance: ACETAMINOPHEN\TRAMADOL HYDROCHLORIDE
     Dosage: 37.5+32.5MG
     Dates: start: 20220716, end: 20220717
  61. ULTRACET [Concomitant]
     Active Substance: ACETAMINOPHEN\TRAMADOL HYDROCHLORIDE
     Dosage: 37.5+325MG
     Dates: start: 20220718, end: 20220727
  62. SUPRAX [Concomitant]
     Active Substance: CEFIXIME
     Indication: Cholangitis
     Dates: start: 20220718, end: 20220720
  63. ACYCLOVIR [Concomitant]
     Active Substance: ACYCLOVIR
     Indication: Herpes simplex reactivation
     Dosage: 0.25G/5G
     Dates: start: 20220719, end: 20220719
  64. GASTER (SOUTH KOREA) [Concomitant]
     Indication: Vomiting
     Dates: start: 20220722, end: 20220722
  65. CLOVIR INJECTION [Concomitant]
     Indication: Herpes simplex reactivation
     Dates: start: 20220722, end: 20220722
  66. LANSOPRAZOLE [Concomitant]
     Active Substance: LANSOPRAZOLE
     Indication: Prophylaxis of nausea and vomiting
     Dates: start: 20220722, end: 20220722
  67. NEXIUM [Concomitant]
     Active Substance: ESOMEPRAZOLE MAGNESIUM
     Indication: Prophylaxis of nausea and vomiting
     Dates: start: 20220728, end: 20220728
  68. VITAMINS [Concomitant]
     Active Substance: VITAMINS
     Indication: Decreased appetite
     Dates: start: 20220722, end: 20220723
  69. ABRAXANE [Concomitant]
     Active Substance: PACLITAXEL
     Dates: start: 20221014
  70. GEMCITABINE [Concomitant]
     Active Substance: GEMCITABINE
     Dates: start: 20221014
  71. CISPLATIN [Concomitant]
     Active Substance: CISPLATIN
     Dates: start: 20221014

REACTIONS (2)
  - Pyrexia [Recovered/Resolved]
  - Hyperglycaemia [Not Recovered/Not Resolved]

NARRATIVE: CASE EVENT DATE: 20210929
